FAERS Safety Report 5043643-7 (Version None)
Quarter: 2006Q2

REPORT INFORMATION
  Report Type: 
  Country: None (occurrence: None)
  Receive Date: 20060628
  Receipt Date: 20060615
  Transmission Date: 20061013
  Serious: Yes (Other)
  Sender: FDA-Public Use
  Company Number: HQWYE288220JUN06

PATIENT
  Sex: Female
  Weight: 77.18 kg

DRUGS (3)
  1. ORUDIS KT [Suspect]
     Indication: SCIATICA
     Dosage: 2 CAPLETS EVERY 4 TO 6 HOURS PER DAY, ORAL
     Route: 048
     Dates: end: 20060101
  2. ATENOLOL [Concomitant]
  3. ESTRADIOL [Concomitant]

REACTIONS (2)
  - DRUG DEPENDENCE [None]
  - OVERDOSE [None]
